FAERS Safety Report 19029895 (Version 1)
Quarter: 2021Q1

REPORT INFORMATION
  Report Type: Spontaneous
  Country: US (occurrence: US)
  Receive Date: 20210319
  Receipt Date: 20210319
  Transmission Date: 20210420
  Serious: Yes (Other)
  Sender: FDA-Public Use
  Company Number: US-AMGEN-USASP2021040428

PATIENT
  Age: 69 Year
  Sex: Female

DRUGS (12)
  1. FUROSEMIDE. [Concomitant]
     Active Substance: FUROSEMIDE
  2. MORPHINE SULF [Concomitant]
     Active Substance: MORPHINE SULFATE
  3. TORSEMIDE. [Concomitant]
     Active Substance: TORSEMIDE
  4. ASPIRIN [ACETYLSALICYLIC ACID] [Concomitant]
     Active Substance: ASPIRIN
  5. OTEZLA [Suspect]
     Active Substance: APREMILAST
     Indication: PSORIATIC ARTHROPATHY
     Dosage: 30 MILLIGRAM, BID
     Route: 048
     Dates: start: 20150827
  6. DEXAMETHASON [DEXAMETHASONE] [Concomitant]
     Active Substance: DEXAMETHASONE
  7. ATORVASTATIN [Concomitant]
     Active Substance: ATORVASTATIN
  8. VITAMIN D [COLECALCIFEROL] [Concomitant]
     Active Substance: CHOLECALCIFEROL
  9. LOSARTAN POTASSIUM. [Concomitant]
     Active Substance: LOSARTAN POTASSIUM
  10. OXYCODONE W/APAP [Concomitant]
     Active Substance: ACETAMINOPHEN\OXYCODONE HYDROCHLORIDE
  11. HYDROMORPHONE [Concomitant]
     Active Substance: HYDROMORPHONE
  12. DILAUDID [Concomitant]
     Active Substance: HYDROMORPHONE HYDROCHLORIDE

REACTIONS (2)
  - Product dose omission issue [Unknown]
  - Psoriatic arthropathy [Not Recovered/Not Resolved]

NARRATIVE: CASE EVENT DATE: 20210201
